FAERS Safety Report 17184245 (Version 1)
Quarter: 2019Q4

REPORT INFORMATION
  Report Type: Spontaneous
  Country: US (occurrence: US)
  Receive Date: 20191220
  Receipt Date: 20191220
  Transmission Date: 20200122
  Serious: No
  Sender: FDA-Public Use
  Company Number: US-RECKITT BENCKISER HEALTHCARE INT LIMITED-RB-85647-2019

PATIENT
  Age: 4 Year
  Sex: Male

DRUGS (2)
  1. DELSYM [Suspect]
     Active Substance: DEXTROMETHORPHAN
     Indication: PRODUCT USED FOR UNKNOWN INDICATION
     Dosage: 5 MILLILITER, QD
     Route: 065
     Dates: start: 20190513
  2. DELSYM [Suspect]
     Active Substance: DEXTROMETHORPHAN
     Dosage: 5 MILLILITER, QD
     Route: 065
     Dates: start: 20190514

REACTIONS (1)
  - Accidental overdose [Unknown]
